FAERS Safety Report 23501725 (Version 1)
Quarter: 2024Q1

REPORT INFORMATION
  Report Type: Spontaneous
  Country: CA (occurrence: CA)
  Receive Date: 20240208
  Receipt Date: 20240208
  Transmission Date: 20240410
  Serious: Yes (Other)
  Sender: FDA-Public Use
  Company Number: CA-FreseniusKabi-FK202402163

PATIENT
  Age: 32 Year
  Sex: Male

DRUGS (5)
  1. ETOPOSIDE [Suspect]
     Active Substance: ETOPOSIDE
     Indication: Product used for unknown indication
     Dosage: DOSAGE FORM: NOT SPECIFIED
  2. CARBOPLATIN [Suspect]
     Active Substance: CARBOPLATIN
     Indication: Product used for unknown indication
     Dosage: FORM: SOLUTION INTRAVENOUS
  3. KEYTRUDA [Suspect]
     Active Substance: PEMBROLIZUMAB
     Indication: Product used for unknown indication
     Dosage: FORM: NOT SPECIFIED
  4. AFINITOR [Suspect]
     Active Substance: EVEROLIMUS
     Indication: Product used for unknown indication
     Dosage: FORM: TABLETS
  5. SUTENT [Suspect]
     Active Substance: SUNITINIB MALATE
     Indication: Product used for unknown indication
     Dosage: FORM: CAPSULES

REACTIONS (2)
  - Disease progression [Unknown]
  - Drug ineffective [Unknown]
